FAERS Safety Report 20814676 (Version 1)
Quarter: 2022Q2

REPORT INFORMATION
  Report Type: Spontaneous
  Country: US (occurrence: US)
  Receive Date: 20220511
  Receipt Date: 20220511
  Transmission Date: 20220721
  Serious: Yes (Other)
  Sender: FDA-Public Use
  Company Number: US-PFIZER INC-202200640375

PATIENT
  Age: 56 Year
  Sex: Female

DRUGS (3)
  1. SKELAXIN [Suspect]
     Active Substance: METAXALONE
     Indication: Muscle spasms
     Dosage: UNK, 3X/DAY (3 TIMES A DAY)
  2. SKELAXIN [Suspect]
     Active Substance: METAXALONE
     Indication: Hypotonia
  3. SKELAXIN [Suspect]
     Active Substance: METAXALONE
     Indication: Pain

REACTIONS (2)
  - Spinal operation [Unknown]
  - Cerebrospinal fluid leakage [Unknown]
